FAERS Safety Report 6590207-X (Version None)
Quarter: 2010Q1

REPORT INFORMATION
  Report Type: 
  Country: None (occurrence: None)
  Receive Date: 20100219
  Receipt Date: 20100209
  Transmission Date: 20100710
  Serious: Yes (Hospitalization)
  Sender: FDA-Public Use
  Company Number: JP-NOVOPROD-304130

PATIENT

DRUGS (1)
  1. NOVORAPID 30 MIX CHU FLEXPEN [Suspect]
     Indication: DRUG USE FOR UNKNOWN INDICATION
     Dosage: 450 U, UNK
     Route: 058

REACTIONS (3)
  - HYPOGLYCAEMIA [None]
  - OVERDOSE [None]
  - SUICIDE ATTEMPT [None]
